FAERS Safety Report 13816585 (Version 1)
Quarter: 2017Q3

REPORT INFORMATION
  Report Type: Spontaneous
  Country: US (occurrence: US)
  Receive Date: 20170731
  Receipt Date: 20170731
  Transmission Date: 20171127
  Serious: No
  Sender: FDA-Public Use
  Company Number: US-JNJFOC-20170519818

PATIENT
  Age: 39 Year
  Sex: Male
  Weight: 86.18 kg

DRUGS (2)
  1. ZYRTEC [Suspect]
     Active Substance: CETIRIZINE HYDROCHLORIDE
     Route: 048
  2. ZYRTEC [Suspect]
     Active Substance: CETIRIZINE HYDROCHLORIDE
     Indication: SEASONAL ALLERGY
     Dosage: TOOK ONE TABLET AT 0730H (BEFORE SHOWER) THEN TOOK ANOTHER TABLET. (AFTER SHOWER)
     Route: 048
     Dates: start: 20170518, end: 20170518

REACTIONS (3)
  - Dizziness [Recovered/Resolved]
  - Hypervigilance [Recovered/Resolved]
  - Extra dose administered [Recovered/Resolved]

NARRATIVE: CASE EVENT DATE: 20170518
